FAERS Safety Report 20526689 (Version 2)
Quarter: 2022Q1

REPORT INFORMATION
  Report Type: Spontaneous
  Country: BE (occurrence: BE)
  Receive Date: 20220228
  Receipt Date: 20220308
  Transmission Date: 20220423
  Serious: Yes (Hospitalization, Other)
  Sender: FDA-Public Use
  Company Number: BE-Accord-253187

PATIENT
  Age: 78 Year
  Sex: Male
  Weight: 76.9 kg

DRUGS (37)
  1. VINCRISTINE SULFATE [Suspect]
     Active Substance: VINCRISTINE SULFATE
     Dosage: 1.4 MG/M2; 1Q3W
     Route: 042
     Dates: start: 20210916
  2. RITUXIMAB [Suspect]
     Active Substance: RITUXIMAB
     Dosage: 375 MG/M2; 1Q3W
     Route: 042
     Dates: start: 20210916
  3. METHYLPREDNISOLONE SODIUM SUCCINATE [Suspect]
     Active Substance: METHYLPREDNISOLONE SODIUM SUCCINATE
     Dosage: 80 MG; QD; SOLUTION FOR INJECTION/INFUSION
     Route: 042
     Dates: start: 20210916, end: 20210917
  4. METHYLPREDNISOLONE SODIUM SUCCINATE [Suspect]
     Active Substance: METHYLPREDNISOLONE SODIUM SUCCINATE
     Dosage: 80 MG; QD; SOLUTION FOR INJECTION/INFUSION
     Route: 048
     Dates: start: 20211119, end: 20211122
  5. METHYLPREDNISOLONE SODIUM SUCCINATE [Suspect]
     Active Substance: METHYLPREDNISOLONE SODIUM SUCCINATE
     Dosage: 80 MG; QD; SOLUTION FOR INJECTION/INFUSION
     Route: 048
     Dates: start: 20211008, end: 20211011
  6. METHYLPREDNISOLONE SODIUM SUCCINATE [Suspect]
     Active Substance: METHYLPREDNISOLONE SODIUM SUCCINATE
     Dosage: 80 MG; QD; SOLUTION FOR INJECTION/INFUSION
     Route: 042
     Dates: start: 20211028, end: 20211028
  7. METHYLPREDNISOLONE SODIUM SUCCINATE [Suspect]
     Active Substance: METHYLPREDNISOLONE SODIUM SUCCINATE
     Dosage: 80 MG; QD; SOLUTION FOR INJECTION/INFUSION
     Route: 048
     Dates: start: 20211029, end: 20211101
  8. METHYLPREDNISOLONE SODIUM SUCCINATE [Suspect]
     Active Substance: METHYLPREDNISOLONE SODIUM SUCCINATE
     Dosage: 80 MG; QD; SOLUTION FOR INJECTION/INFUSION
     Route: 042
     Dates: start: 20211007, end: 20211007
  9. METHYLPREDNISOLONE SODIUM SUCCINATE [Suspect]
     Active Substance: METHYLPREDNISOLONE SODIUM SUCCINATE
     Dosage: 80 MG; QD; SOLUTION FOR INJECTION/INFUSION
     Route: 048
     Dates: start: 20210918, end: 20210920
  10. METHYLPREDNISOLONE SODIUM SUCCINATE [Suspect]
     Active Substance: METHYLPREDNISOLONE SODIUM SUCCINATE
     Dosage: 80 MG; QD; SOLUTION FOR INJECTION/INFUSION
     Route: 042
     Dates: start: 20211118, end: 20211118
  11. DOXORUBICIN HYDROCHLORIDE [Suspect]
     Active Substance: DOXORUBICIN HYDROCHLORIDE
     Dosage: 50 MG/M2; 1Q3W
     Route: 042
     Dates: start: 20210916
  12. CYCLOPHOSPHAMIDE [Suspect]
     Active Substance: CYCLOPHOSPHAMIDE
     Dosage: 1Q3W;
     Route: 042
     Dates: start: 20210916
  13. EPCORITAMAB [Suspect]
     Active Substance: EPCORITAMAB
     Dosage: 48 MG, WEEKLY; FULL DOSE; DOSE DELAYED
     Route: 058
     Dates: start: 20211202
  14. EPCORITAMAB [Suspect]
     Active Substance: EPCORITAMAB
     Dosage: INTERMEDIATE DOSE: 0.8
     Route: 058
     Dates: start: 20210923, end: 20210923
  15. EPCORITAMAB [Suspect]
     Active Substance: EPCORITAMAB
     Dosage: 0.16 MG, SINGLE; PRIMING DOSE
     Route: 058
     Dates: start: 20210917, end: 20210917
  16. EPCORITAMAB [Suspect]
     Active Substance: EPCORITAMAB
     Dosage: 48 MG, WEEKLY; FULL DOSE
     Route: 058
     Dates: start: 20211001, end: 20211118
  17. MOVICOL [Concomitant]
     Active Substance: POLYETHYLENE GLYCOL 3350\POTASSIUM CHLORIDE\SODIUM BICARBONATE\SODIUM CHLORIDE
     Dates: start: 20210829
  18. METFORMIN [Concomitant]
     Active Substance: METFORMIN HYDROCHLORIDE
     Dates: start: 202108
  19. BISOPROLOL [Concomitant]
     Active Substance: BISOPROLOL
     Dates: start: 20211118
  20. FOLIC ACID [Concomitant]
     Active Substance: FOLIC ACID
     Dates: start: 20210902
  21. LIPEGFILGRASTIM [Concomitant]
     Active Substance: LIPEGFILGRASTIM
     Dates: start: 20211028, end: 20211118
  22. AMLODIPINE [Concomitant]
     Active Substance: AMLODIPINE BESYLATE
     Dates: start: 20210904, end: 20211118
  23. ALLOPURINOL [Concomitant]
     Active Substance: ALLOPURINOL
     Dates: start: 20210903, end: 20211028
  24. COTRIMOXAZOLE [Concomitant]
     Active Substance: SULFAMETHOXAZOLE\TRIMETHOPRIM
     Dates: start: 20210831
  25. COVID-19 VACCINE [Concomitant]
     Dosage: DOSE NUMBER UNKNOWN, SINGLE
     Dates: start: 20211123, end: 20211123
  26. ACYCLOVIR [Concomitant]
     Active Substance: ACYCLOVIR
     Dates: start: 20210904
  27. ONDANSETRON [Concomitant]
     Active Substance: ONDANSETRON
     Dates: start: 20210917, end: 20211230
  28. ACETAMINOPHEN [Concomitant]
     Active Substance: ACETAMINOPHEN
     Dates: start: 20211112, end: 20211202
  29. ACETAMINOPHEN [Concomitant]
     Active Substance: ACETAMINOPHEN
     Dosage: UNK
     Dates: start: 202108
  30. INSULIN NOS [Concomitant]
     Active Substance: INSULIN NOS
     Dates: start: 20211007
  31. QUETIAPINE [Concomitant]
     Active Substance: QUETIAPINE
     Dates: start: 20211202, end: 20220104
  32. METHYLPREDNISOLONE [Concomitant]
     Active Substance: METHYLPREDNISOLONE
     Dates: start: 20211202, end: 20211202
  33. CETIRIZINE [Concomitant]
     Active Substance: CETIRIZINE HYDROCHLORIDE
     Dates: start: 20211112, end: 20211202
  34. TRAMADOL [Concomitant]
     Active Substance: TRAMADOL
     Dates: start: 20210828
  35. CALCIUM\CHOLECALCIFEROL [Concomitant]
     Active Substance: CALCIUM\CHOLECALCIFEROL
     Dates: start: 20210908
  36. PANTOPRAZOLE SODIUM [Concomitant]
     Active Substance: PANTOPRAZOLE SODIUM
     Dates: start: 202108
  37. RAMIPRIL [Concomitant]
     Active Substance: RAMIPRIL
     Dates: start: 20210901

REACTIONS (2)
  - Pneumonia [Recovered/Resolved]
  - Neutrophil count decreased [Unknown]

NARRATIVE: CASE EVENT DATE: 20211124
